FAERS Safety Report 5959497-8 (Version None)
Quarter: 2008Q4

REPORT INFORMATION
  Report Type: 
  Country: None (occurrence: None)
  Receive Date: 20081117
  Receipt Date: 20081106
  Transmission Date: 20090506
  Serious: Yes (Death, Life-Threatening, Hospitalization, Disabling)
  Sender: FDA-Public Use
  Company Number: CERZ-1000052

PATIENT
  Age: 3 Month
  Sex: Male
  Weight: 7 kg

DRUGS (23)
  1. CEREZYME [Suspect]
     Indication: GAUCHER'S DISEASE
     Dosage: 60 U/KG, Q2W, INTRAVENOUS 600 U/I, INTRAVENOUS 400 U, Q2W, INTRAVENOUS
     Route: 042
     Dates: start: 20060927, end: 20080101
  2. CEREZYME [Suspect]
     Indication: GAUCHER'S DISEASE
     Dosage: 60 U/KG, Q2W, INTRAVENOUS 600 U/I, INTRAVENOUS 400 U, Q2W, INTRAVENOUS
     Route: 042
     Dates: end: 20080410
  3. CEREZYME [Suspect]
     Indication: GAUCHER'S DISEASE
     Dosage: 60 U/KG, Q2W, INTRAVENOUS 600 U/I, INTRAVENOUS 400 U, Q2W, INTRAVENOUS
     Route: 042
     Dates: start: 20080128
  4. ZONISAMIDE [Suspect]
     Indication: DRUG USE FOR UNKNOWN INDICATION
     Dosage: 12 MG 25 MG 35 MG
     Dates: start: 20070530, end: 20080118
  5. ZONISAMIDE [Suspect]
     Indication: DRUG USE FOR UNKNOWN INDICATION
     Dosage: 12 MG 25 MG 35 MG
     Dates: start: 20061102
  6. ZONISAMIDE [Suspect]
     Indication: DRUG USE FOR UNKNOWN INDICATION
     Dosage: 12 MG 25 MG 35 MG
     Dates: start: 20070119
  7. ZONISAMIDE [Suspect]
     Indication: DRUG USE FOR UNKNOWN INDICATION
     Dosage: 12 MG 25 MG 35 MG
     Dates: start: 20080128
  8. CARBAMAZEPINE [Suspect]
     Indication: DRUG USE FOR UNKNOWN INDICATION
     Dosage: 60 MG
     Dates: start: 20070809
  9. ANTIBIOTICS-RESSISTANT LACTIC ACID BACTERIAE [Concomitant]
  10. MIXED KILLED BACTERIA PREPARATIONS [Concomitant]
  11. CARBOCISTEINE (CARBOCISTEINE) [Concomitant]
  12. PROCATEROL HCL [Concomitant]
  13. AMBROXOL HYDROCHLORIDE (AMBROXOL HYDROCHLORIDE) [Concomitant]
  14. DIAZEPAM [Concomitant]
  15. TRICHLORETHYL PHOSPHATE SODIUM [Concomitant]
  16. CLONAZEPAM [Concomitant]
  17. CEFOTIAM HYDROCHLORIDE [Concomitant]
  18. SODIUM BICARBONATE IN PLASTIC CONTAINER [Concomitant]
  19. SEVOFLURANE [Concomitant]
  20. NITROUS OXIDE W/ OXYGEN [Concomitant]
  21. VECURONIUM BROMIDE [Concomitant]
  22. ATROPINE SULFATE [Concomitant]
  23. CEFDITOREN PIVOXIL (CEFDITOREN PIVOXIL) [Concomitant]

REACTIONS (17)
  - ALVEOLAR PROTEINOSIS [None]
  - APNOEIC ATTACK [None]
  - BRONCHITIS [None]
  - CONJUNCTIVITIS [None]
  - CONVULSION [None]
  - DEHYDRATION [None]
  - GASTROENTERITIS [None]
  - INSOMNIA [None]
  - INTERSTITIAL LUNG DISEASE [None]
  - NASOPHARYNGITIS [None]
  - PNEUMONIA ASPIRATION [None]
  - PNEUMONIA RESPIRATORY SYNCYTIAL VIRAL [None]
  - POST PROCEDURAL COMPLICATION [None]
  - RESPIRATORY ARREST [None]
  - RESPIRATORY FAILURE [None]
  - STATUS EPILEPTICUS [None]
  - UPPER RESPIRATORY TRACT INFLAMMATION [None]
